FAERS Safety Report 19854238 (Version 1)
Quarter: 2021Q3

REPORT INFORMATION
  Report Type: Spontaneous
  Country: US (occurrence: US)
  Receive Date: 20210920
  Receipt Date: 20210920
  Transmission Date: 20211014
  Serious: No
  Sender: FDA-Public Use
  Company Number: US-ALK-ABELLO A/S-2021AA003340

PATIENT

DRUGS (1)
  1. GRASTEK [Suspect]
     Active Substance: PHLEUM PRATENSE POLLEN
     Indication: SEASONAL ALLERGY
     Dosage: UNK
     Route: 060
     Dates: start: 202107, end: 2021

REACTIONS (3)
  - Throat irritation [Recovered/Resolved]
  - Pruritus [Recovered/Resolved]
  - Throat tightness [Recovered/Resolved]

NARRATIVE: CASE EVENT DATE: 202107
